FAERS Safety Report 18619651 (Version 1)
Quarter: 2020Q4

REPORT INFORMATION
  Report Type: Spontaneous
  Country: PK (occurrence: PK)
  Receive Date: 20201215
  Receipt Date: 20201215
  Transmission Date: 20210114
  Serious: Yes (Death, Other)
  Sender: FDA-Public Use
  Company Number: PK-PFIZER INC-2020082899

PATIENT
  Age: 67 Year
  Weight: 68 kg

DRUGS (15)
  1. REFIXIA [Concomitant]
     Dosage: 550 MG, 1X/DAY
  2. BEROCCA [ASCORBIC ACID;BIOTIN;CALCIUM CARBONATE;CALCIUM GLYCEROPHOSPHA [Concomitant]
     Dosage: UNK, 1X/DAY (IN 1 CAP OF WATER X OD)
  3. SUTENT [Suspect]
     Active Substance: SUNITINIB MALATE
     Dosage: 50 MG, CYCLIC (4 WEEKS ON, 3 WEEKS OFF)
  4. TRES ORIX FORTE [Concomitant]
     Dosage: UNK (2+2)
  5. LYSOVIT [Concomitant]
     Dosage: UNK (2+2)
  6. GLUCERNA [Concomitant]
     Active Substance: AMINO ACIDS\DEXTROSE\ELECTROLYTES NOS\SOYBEAN OIL\VITAMINS
     Dosage: UNK (4 SPOONS IN CAP OF WATER OD)
  7. RISEK [OMEPRAZOLE SODIUM] [Concomitant]
     Dosage: 40 MG, 1X/DAY
  8. DAKTARIN [MICONAZOLE NITRATE] [Concomitant]
     Dosage: UNK, 2X/DAY
  9. RISEK [OMEPRAZOLE SODIUM] [Concomitant]
     Dosage: 20 MG (1+1)
  10. RAMIPACE [Concomitant]
     Dosage: 25 MG, 1X/DAY (HS)
  11. RAMIPACE [Concomitant]
     Dosage: 2.5 MG, 1X/DAY
  12. FOLIC ACID. [Concomitant]
     Active Substance: FOLIC ACID
     Dosage: 1 DF, 1X/DAY
  13. GETRYL [Concomitant]
     Dosage: 1 MG, 1X/DAY
  14. DIOVAN [Concomitant]
     Active Substance: VALSARTAN
     Dosage: 80 MG (1+1)
  15. SUTENT [Suspect]
     Active Substance: SUNITINIB MALATE
     Indication: GASTROINTESTINAL STROMAL TUMOUR
     Dosage: 50 MG, CYCLIC (4 WEEKS ON, 2 WEEKS OFF)

REACTIONS (2)
  - Death [Fatal]
  - Blood pressure increased [Unknown]
